FAERS Safety Report 8810329 (Version 2)
Quarter: 2012Q4

REPORT INFORMATION
  Report Type: 
  Country: US (occurrence: US)
  Receive Date: 20120926
  Receipt Date: 20121018
  Transmission Date: 20130627
  Serious: No
  Sender: FDA-Public Use
  Company Number: US-TEVA-359956USA

PATIENT
  Sex: Male

DRUGS (1)
  1. QVAR [Suspect]
     Dosage: 80 Microgram Daily;
     Route: 055
     Dates: start: 201103

REACTIONS (1)
  - Drug effect decreased [Recovered/Resolved]
